FAERS Safety Report 4725803-5 (Version None)
Quarter: 2005Q3

REPORT INFORMATION
  Report Type: 
  Country: None (occurrence: None)
  Receive Date: 20050722
  Receipt Date: 20050722
  Transmission Date: 20060218
  Serious: Yes (Hospitalization)
  Sender: FDA-Public Use
  Company Number: None

PATIENT
  Age: 54 Year
  Sex: Female

DRUGS (3)
  1. CARBOPLATIN [Suspect]
     Indication: ADENOSQUAMOUS CELL LUNG CANCER
  2. CARBOPLATIN [Suspect]
     Indication: METASTASIS
  3. PACLITAXEL [Suspect]

REACTIONS (1)
  - UNEVALUABLE EVENT [None]
